FAERS Safety Report 10671865 (Version 2)
Quarter: 2015Q1

REPORT INFORMATION
  Report Type: Spontaneous
  Country: US (occurrence: US)
  Receive Date: 20141223
  Receipt Date: 20150119
  Transmission Date: 20150720
  Serious: Yes (Death, Hospitalization, Other)
  Sender: FDA-Public Use
  Company Number: US-MERCK-1412USA010432

PATIENT
  Sex: Male
  Weight: 96.15 kg

DRUGS (12)
  1. LIPITOR [Concomitant]
     Active Substance: ATORVASTATIN CALCIUM
     Dosage: 10 MG, DAILY
  2. GLYBURIDE. [Concomitant]
     Active Substance: GLYBURIDE
     Indication: TYPE 2 DIABETES MELLITUS
     Dosage: 5 MG, BID
  3. FLUOCINONIDE. [Concomitant]
     Active Substance: FLUOCINONIDE
     Dosage: 0.05% TID
     Route: 061
  4. SPIRIVA [Concomitant]
     Active Substance: TIOTROPIUM BROMIDE MONOHYDRATE
     Dosage: 18 MICROGRAM, DAILY
  5. METFORMIN [Concomitant]
     Active Substance: METFORMIN HYDROCHLORIDE
     Indication: TYPE 2 DIABETES MELLITUS
     Dosage: 1000-2000 MG DAILY
  6. TRIDESILON [Concomitant]
     Active Substance: ACETIC ACID\DESONIDE
     Dosage: 0.05% TID
     Route: 061
  7. ELOCON [Concomitant]
     Active Substance: MOMETASONE FUROATE
     Dosage: 0.1% DAILY
     Route: 061
  8. ADVAIR HFA [Concomitant]
     Active Substance: FLUTICASONE PROPIONATE\SALMETEROL XINAFOATE
     Dosage: 250-50 MCG, 1 PUFF BID
  9. LISINOPRIL. [Concomitant]
     Active Substance: LISINOPRIL
     Dosage: 5 MG, DAILY
     Route: 048
  10. JANUVIA [Suspect]
     Active Substance: SITAGLIPTIN PHOSPHATE
     Indication: TYPE 2 DIABETES MELLITUS
     Dosage: 100 MG, QD
     Route: 048
     Dates: start: 20111021, end: 20111214
  11. OMEPRAZOLE. [Concomitant]
     Active Substance: OMEPRAZOLE
     Dosage: 20 MG, DAILY
  12. CLOBETASOL PROPIONATE. [Concomitant]
     Active Substance: CLOBETASOL PROPIONATE
     Dosage: 0.05% BID
     Route: 061

REACTIONS (14)
  - Adenocarcinoma pancreas [Unknown]
  - Hyponatraemia [Unknown]
  - Diabetes mellitus inadequate control [Unknown]
  - Bile duct obstruction [Unknown]
  - Post procedural complication [Unknown]
  - Pancreatitis [Unknown]
  - Death [Fatal]
  - Dehydration [Unknown]
  - Pancreaticoduodenectomy [Unknown]
  - Surgery [Unknown]
  - Dehydration [Unknown]
  - Hyperkalaemia [Unknown]
  - Biliary drainage [Unknown]
  - Spinal osteoarthritis [Unknown]

NARRATIVE: CASE EVENT DATE: 201111
